FAERS Safety Report 4846845-5 (Version None)
Quarter: 2005Q4

REPORT INFORMATION
  Report Type: 
  Country: None (occurrence: None)
  Receive Date: 20051207
  Receipt Date: 20041021
  Transmission Date: 20060501
  Serious: No
  Sender: FDA-Public Use
  Company Number: US-BRISTOL-MYERS SQUIBB COMPANY-12739322

PATIENT
  Age: 54 Year
  Sex: Female
  Weight: 47 kg

DRUGS (6)
  1. VIDEX EC [Suspect]
     Indication: HIV INFECTION
     Route: 048
     Dates: start: 20010101
  2. VIREAD [Concomitant]
  3. SUSTIVA [Concomitant]
  4. STROVITE FORTE [Concomitant]
  5. ALPRAZOLAM [Concomitant]
  6. MAALOX FAST BLOCKER [Concomitant]

REACTIONS (1)
  - BLOOD CHOLESTEROL INCREASED [None]
